FAERS Safety Report 19738163 (Version 1)
Quarter: 2021Q3

REPORT INFORMATION
  Report Type: Spontaneous
  Country: IT (occurrence: IT)
  Receive Date: 20210823
  Receipt Date: 20210823
  Transmission Date: 20211014
  Serious: Yes (Disabling, Other)
  Sender: FDA-Public Use
  Company Number: IT-OTSUKA-2021_028828

PATIENT
  Age: 33 Year
  Sex: Female

DRUGS (3)
  1. CARBOLITHIUM [Concomitant]
     Active Substance: LITHIUM CARBONATE
     Indication: ANTIPSYCHOTIC DRUG LEVEL
     Dosage: UNK
     Route: 065
  2. ABILIFY [Suspect]
     Active Substance: ARIPIPRAZOLE
     Indication: ANTIPSYCHOTIC DRUG LEVEL
     Dosage: UNK
     Route: 065
  3. ABILIFY MAINTENA [Suspect]
     Active Substance: ARIPIPRAZOLE
     Indication: ANTIPSYCHOTIC DRUG LEVEL
     Dosage: 400 MG
     Route: 030
     Dates: start: 202105

REACTIONS (4)
  - Extrapyramidal disorder [Not Recovered/Not Resolved]
  - Gait inability [Unknown]
  - Obsessive-compulsive disorder [Not Recovered/Not Resolved]
  - Confusional state [Unknown]

NARRATIVE: CASE EVENT DATE: 202105
